FAERS Safety Report 6681600-5 (Version None)
Quarter: 2010Q2

REPORT INFORMATION
  Report Type: 
  Country: None (occurrence: None)
  Receive Date: 20100414
  Receipt Date: 20100413
  Transmission Date: 20101027
  Serious: Yes (Hospitalization)
  Sender: FDA-Public Use
  Company Number: IT-BRISTOL-MYERS SQUIBB COMPANY-14988356

PATIENT
  Age: 80 Year
  Sex: Female

DRUGS (11)
  1. COUMADIN [Suspect]
     Indication: ARRHYTHMIA SUPRAVENTRICULAR
     Dosage: 31AUG09 1/2 TAB AND 18FEB10 3/4TAB
     Route: 048
     Dates: start: 20090801, end: 20100218
  2. COUMADIN [Suspect]
     Dosage: 31AUG09 1/2 TAB AND 18FEB10 3/4TAB
     Route: 048
     Dates: start: 20090801, end: 20100218
  3. SINEMET [Suspect]
     Indication: PARKINSON'S DISEASE
     Dosage: 1 DF = 4 POSOLOGIC UNITS.
     Route: 048
     Dates: start: 20060801, end: 20100218
  4. COMTAN [Concomitant]
     Dosage: 1 DF = 4 POSOLOGIC UNITS.
  5. ALLOPURINOL [Concomitant]
     Dosage: 1 DF = 150MG FORMULATION: TABS
     Route: 048
  6. REQUIP [Concomitant]
  7. LASIX [Concomitant]
     Dosage: DOSAGE= 3 POSOLOGIC UNITS FORMULATION: TABS
     Route: 048
  8. RAMIPRIL [Concomitant]
  9. LEVOTHYROXINE SODIUM [Concomitant]
  10. KCL RETARD [Concomitant]
  11. TPN [Concomitant]

REACTIONS (1)
  - PROTHROMBIN TIME PROLONGED [None]
